FAERS Safety Report 6241396-8 (Version None)
Quarter: 2009Q2

REPORT INFORMATION
  Report Type: 
  Country: None (occurrence: None)
  Receive Date: 20090619
  Receipt Date: 20090619
  Transmission Date: 20091009
  Serious: No
  Sender: FDA-Public Use
  Company Number: None

PATIENT
  Age: 28 Year
  Sex: Female
  Weight: 90.7194 kg

DRUGS (2)
  1. ZICAM NASAL GEL [Suspect]
     Indication: NASOPHARYNGITIS
     Dosage: 1 SPRAY UP EACH NASAL OPENING 1 TIME (ONLY USED 1 TIME)
     Dates: start: 20081110, end: 20081110
  2. ZICAM NASAL GEL [Suspect]
     Indication: RHINORRHOEA
     Dosage: 1 SPRAY UP EACH NASAL OPENING 1 TIME (ONLY USED 1 TIME)
     Dates: start: 20081110, end: 20081110

REACTIONS (2)
  - AGEUSIA [None]
  - ANOSMIA [None]
